FAERS Safety Report 6213897-X (Version None)
Quarter: 2009Q2

REPORT INFORMATION
  Report Type: 
  Country: None (occurrence: None)
  Receive Date: 20090602
  Receipt Date: 20090602
  Transmission Date: 20091009
  Serious: Yes (Hospitalization)
  Sender: FDA-Public Use
  Company Number: None

PATIENT
  Age: 56 Year
  Sex: Female
  Weight: 104.3273 kg

DRUGS (1)
  1. ACTOS [Suspect]
     Indication: DIABETES MELLITUS
     Dosage: ONE 45 DAILY PO STILL USE, AFRAID.
     Route: 048
     Dates: start: 20040102, end: 20090601

REACTIONS (8)
  - ANKLE FRACTURE [None]
  - FALL [None]
  - GAIT DISTURBANCE [None]
  - IMPAIRED WORK ABILITY [None]
  - LOOSE TOOTH [None]
  - LOWER LIMB FRACTURE [None]
  - MULTIPLE INJURIES [None]
  - TOOTH LOSS [None]
